FAERS Safety Report 10234066 (Version 1)
Quarter: 2014Q2

REPORT INFORMATION
  Report Type: Report from Study
  Country: MX (occurrence: MX)
  Receive Date: 20140612
  Receipt Date: 20140612
  Transmission Date: 20141212
  Serious: Yes (Other)
  Sender: FDA-Public Use
  Company Number: PHHY2014MX072876

PATIENT
  Age: 10 Year
  Sex: Female

DRUGS (3)
  1. TRILEPTAL [Suspect]
     Indication: HEMIPARESIS
     Dosage: UNK UKN, UNK
     Dates: end: 201311
  2. TRILEPTAL [Suspect]
     Indication: HEMIPLEGIA
  3. TRILEPTAL [Suspect]
     Indication: OFF LABEL USE

REACTIONS (3)
  - Convulsion [Recovered/Resolved]
  - Head discomfort [Recovered/Resolved]
  - Tremor [Recovered/Resolved]
